FAERS Safety Report 9169703 (Version 2)
Quarter: 2013Q3

REPORT INFORMATION
  Report Type: Spontaneous
  Country: FR (occurrence: FR)
  Receive Date: 20130318
  Receipt Date: 20130718
  Transmission Date: 20140515
  Serious: Yes (Other)
  Sender: FDA-Public Use
  Company Number: FR-ALLERGAN-1303818US

PATIENT
  Age: 79 Year
  Sex: Female

DRUGS (12)
  1. TROSPIUM CHLORIDE UNK [Suspect]
     Indication: PRODUCT USED FOR UNKNOWN INDICATION
     Dosage: 20 MG, QD
     Route: 048
     Dates: end: 20120525
  2. EBIXA [Suspect]
     Indication: PRODUCT USED FOR UNKNOWN INDICATION
     Dosage: 1 DF, QD
     Route: 048
     Dates: end: 20120525
  3. CYMBALTA [Suspect]
     Indication: PRODUCT USED FOR UNKNOWN INDICATION
     Dosage: 1 DF, QD
     Route: 048
     Dates: end: 20120525
  4. IMOVANE [Suspect]
     Indication: PRODUCT USED FOR UNKNOWN INDICATION
     Dosage: 1 DF, QD
     Route: 048
     Dates: end: 20120525
  5. LYRICA [Suspect]
     Indication: PRODUCT USED FOR UNKNOWN INDICATION
     Dosage: 2 DF, QD
     Route: 048
  6. SKENAN [Suspect]
     Indication: PRODUCT USED FOR UNKNOWN INDICATION
     Dosage: 2 DF, QD
     Route: 048
  7. NOOTROPYL [Suspect]
     Indication: PRODUCT USED FOR UNKNOWN INDICATION
     Dosage: 2 DF, QD
     Dates: end: 20120525
  8. SPECIAFOLDINE [Concomitant]
     Dosage: UNK
     Dates: end: 20120525
  9. LEVOTHYROXINE [Concomitant]
     Dosage: 100 ?G, UNK
  10. FUROSEMIDE [Concomitant]
     Dosage: 20 MG, UNK
  11. SPIRIVA [Concomitant]
     Dosage: 18 ?G, UNK
     Dates: end: 20120525
  12. BECLOSPIN [Concomitant]
     Dosage: UNK
     Dates: end: 20120525

REACTIONS (3)
  - Disturbance in attention [Recovered/Resolved]
  - Respiratory distress [Recovered/Resolved]
  - Pyrexia [Recovered/Resolved]
